FAERS Safety Report 10644967 (Version 1)
Quarter: 2014Q4

REPORT INFORMATION
  Report Type: Spontaneous
  Country: US (occurrence: None)
  Receive Date: 20141210
  Receipt Date: 20141210
  Transmission Date: 20150529
  Serious: Yes (Other)
  Sender: FDA-Public Use
  Company Number: None

PATIENT
  Age: 52 Year
  Sex: Male

DRUGS (1)
  1. TRUVADA [Suspect]
     Active Substance: EMTRICITABINE\TENOFOVIR DISOPROXIL FUMARATE
     Indication: HIV INFECTION
     Dosage: STRENGTH: 200/300MG, DOSE FORM: ORAL, ROUTE: ORAL 047, FREQUENCY: ONCE DAILY
     Route: 048
     Dates: start: 201306, end: 201411

REACTIONS (1)
  - Renal disorder [None]

NARRATIVE: CASE EVENT DATE: 20141203
